FAERS Safety Report 24091962 (Version 1)
Quarter: 2024Q3

REPORT INFORMATION
  Report Type: Spontaneous
  Country: GR (occurrence: GR)
  Receive Date: 20240715
  Receipt Date: 20240715
  Transmission Date: 20241016
  Serious: No
  Sender: PFIZER
  Company Number: GR-SEATTLE GENETICS-2023SGN04870

PATIENT
  Age: 49 Year
  Sex: Female

DRUGS (3)
  1. TRASTUZUMAB [Suspect]
     Active Substance: TRASTUZUMAB
     Indication: HER2 positive breast cancer
     Dosage: UNK
     Route: 065
     Dates: start: 202211
  2. TUKYSA [Suspect]
     Active Substance: TUCATINIB
     Indication: HER2 positive breast cancer
     Dosage: UNK
     Route: 065
     Dates: start: 202211
  3. CAPECITABINE [Suspect]
     Active Substance: CAPECITABINE
     Indication: HER2 positive breast cancer
     Dosage: UNK
     Route: 065
     Dates: start: 202211

REACTIONS (2)
  - Neoplasm progression [Unknown]
  - Vomiting [Unknown]

NARRATIVE: CASE EVENT DATE: 20230401
